FAERS Safety Report 25724858 (Version 1)
Quarter: 2025Q3

REPORT INFORMATION
  Report Type: Spontaneous
  Country: US (occurrence: US)
  Receive Date: 20250826
  Receipt Date: 20250826
  Transmission Date: 20251020
  Serious: No
  Sender: RANBAXY
  Company Number: US-MIMS-SUN-2025-USA-53236

PATIENT
  Sex: Male

DRUGS (1)
  1. TERBINAFINE [Suspect]
     Active Substance: TERBINAFINE
     Indication: Product used for unknown indication
     Route: 065

REACTIONS (2)
  - Product administered at inappropriate site [Unknown]
  - Contraindicated product administered [Unknown]
